FAERS Safety Report 8242766-9 (Version None)
Quarter: 2012Q1

REPORT INFORMATION
  Report Type: 
  Country: None (occurrence: None)
  Receive Date: 20120329
  Receipt Date: 20120320
  Transmission Date: 20120608
  Serious: Yes (Hospitalization, Other)
  Sender: FDA-Public Use
  Company Number: US-BAYER-2011-069353

PATIENT
  Age: 37 Year
  Sex: Female
  Weight: 88.435 kg

DRUGS (5)
  1. YASMIN [Suspect]
     Indication: POLYCYSTIC OVARIES
     Dosage: UNK
     Dates: start: 20020201, end: 20021101
  2. IRON [Concomitant]
     Indication: IRON DEFICIENCY ANAEMIA
  3. CHROMAGEN [Concomitant]
  4. ALPRAZOLAM [Concomitant]
  5. IBUPROFEN (ADVIL) [Concomitant]

REACTIONS (5)
  - DEEP VEIN THROMBOSIS [None]
  - ANXIETY [None]
  - PAIN [None]
  - PULMONARY EMBOLISM [None]
  - DEPRESSION [None]
